FAERS Safety Report 9362043 (Version 3)
Quarter: 2014Q2

REPORT INFORMATION
  Report Type: Spontaneous
  Country: US (occurrence: US)
  Receive Date: 20130621
  Receipt Date: 20140404
  Transmission Date: 20141212
  Serious: Yes (Death, Hospitalization)
  Sender: FDA-Public Use
  Company Number: US-B.I. PHARMACEUTICALS,INC./RIDGEFIELD-2013-BI-17555BP

PATIENT
  Sex: Male
  Weight: 93.89 kg

DRUGS (10)
  1. PRADAXA [Suspect]
     Indication: ATRIAL FIBRILLATION
     Dosage: 150 MG
     Route: 065
     Dates: start: 201104, end: 20111018
  2. SYNTHROID [Concomitant]
     Dosage: 250 MG
     Route: 065
  3. ZOCOR [Concomitant]
     Dosage: 20 MG
     Route: 065
  4. LISINOPRIL [Concomitant]
     Dosage: 40 MG
     Route: 065
  5. COREG [Concomitant]
     Dosage: 12.5 MG
     Route: 065
  6. ALDACTONE [Concomitant]
     Route: 065
  7. LASIX [Concomitant]
     Route: 065
  8. MULTIVITAMIN [Concomitant]
     Route: 065
  9. PRILOSEC [Concomitant]
     Route: 065
  10. POTASSIUM CHLORIDE [Concomitant]
     Dosage: 20 MEQ
     Route: 065

REACTIONS (4)
  - Upper gastrointestinal haemorrhage [Fatal]
  - Haemorrhagic anaemia [Fatal]
  - Hypovolaemic shock [Fatal]
  - Renal failure acute [Unknown]
